FAERS Safety Report 21784845 (Version 1)
Quarter: 2022Q4

REPORT INFORMATION
  Report Type: Spontaneous
  Country: IT (occurrence: IT)
  Receive Date: 20221227
  Receipt Date: 20221227
  Transmission Date: 20230113
  Serious: Yes (Other)
  Sender: FDA-Public Use
  Company Number: None

PATIENT
  Age: 73 Year
  Sex: Male
  Weight: 100 kg

DRUGS (11)
  1. LINEZOLID [Suspect]
     Active Substance: LINEZOLID
     Indication: Culture positive
     Dosage: 600 MG, 2X/DAY
     Route: 048
     Dates: start: 20221006, end: 20221020
  2. DAPTOMYCIN [Suspect]
     Active Substance: DAPTOMYCIN
     Indication: Culture positive
     Dosage: 700 MG
     Route: 042
     Dates: start: 20221024, end: 20221121
  3. PIPERACILLIN SODIUM\TAZOBACTAM SODIUM [Suspect]
     Active Substance: PIPERACILLIN SODIUM\TAZOBACTAM SODIUM
     Indication: Culture positive
     Dosage: 18 G, 1X/DAY
     Route: 042
     Dates: start: 20221006, end: 20221020
  4. PIPERACILLIN SODIUM\TAZOBACTAM SODIUM [Suspect]
     Active Substance: PIPERACILLIN SODIUM\TAZOBACTAM SODIUM
     Dosage: 9 G, 1X/DAY
     Dates: start: 20221020, end: 20221024
  5. PIPERACILLIN SODIUM\TAZOBACTAM SODIUM [Suspect]
     Active Substance: PIPERACILLIN SODIUM\TAZOBACTAM SODIUM
     Dosage: 13.5 G, 1X/DAY
     Dates: start: 20221027, end: 20221121
  6. HEPARIN CALCIUM [Suspect]
     Active Substance: HEPARIN CALCIUM
     Indication: Renal failure
     Dosage: UNK UNK, 3X/DAY
     Route: 058
     Dates: start: 20221030, end: 20221104
  7. BENSERAZIDE\LEVODOPA [Concomitant]
     Active Substance: BENSERAZIDE\LEVODOPA
     Dosage: 1 DF, 3X/DAY
     Route: 048
  8. SILODOSIN [Concomitant]
     Active Substance: SILODOSIN
     Dosage: 1 DF, 1X/DAY
  9. AMIODARONE [Concomitant]
     Active Substance: AMIODARONE
     Dosage: 200 MG, 1X/DAY
     Route: 048
  10. DULOXETINE HYDROCHLORIDE [Concomitant]
     Active Substance: DULOXETINE HYDROCHLORIDE
     Dosage: 1 DF, 1X/DAY
  11. PRODUXEN [Concomitant]
     Dosage: 1 DF, 1X/DAY

REACTIONS (4)
  - Skin exfoliation [Not Recovered/Not Resolved]
  - Chronic kidney disease [Not Recovered/Not Resolved]
  - Skin injury [Unknown]
  - Condition aggravated [Unknown]

NARRATIVE: CASE EVENT DATE: 20221027
